FAERS Safety Report 9629238 (Version 1)
Quarter: 2013Q4

REPORT INFORMATION
  Report Type: Spontaneous
  Country: US (occurrence: US)
  Receive Date: 20131017
  Receipt Date: 20131017
  Transmission Date: 20140711
  Serious: No
  Sender: FDA-Public Use
  Company Number: US-ASTRAZENECA-2013SE70293

PATIENT
  Age: 59 Year
  Sex: Male
  Weight: 106.6 kg

DRUGS (13)
  1. CRESTOR [Suspect]
     Indication: BLOOD TRIGLYCERIDES INCREASED
     Route: 048
  2. CRESTOR [Suspect]
     Indication: BLOOD TRIGLYCERIDES INCREASED
     Route: 048
     Dates: start: 20130917
  3. LISINOPRIL [Suspect]
     Indication: CARDIAC DISORDER
     Route: 048
     Dates: start: 2004
  4. MULTIVITES [Concomitant]
     Indication: SUPPLEMENTATION THERAPY
     Dosage: DAILY
  5. VITAMIN E [Concomitant]
     Indication: SUPPLEMENTATION THERAPY
     Dosage: DAILY
  6. VITAMIN E [Concomitant]
     Indication: ANGIOPATHY
     Dosage: DAILY
  7. VITAMIN C [Concomitant]
     Indication: IMMUNE SYSTEM DISORDER
  8. FISH OIL [Concomitant]
     Indication: BLOOD CHOLESTEROL ABNORMAL
     Dosage: 2000 BID
  9. ASPRIN [Concomitant]
     Indication: ANTICOAGULANT THERAPY
  10. PLAVIX [Concomitant]
     Indication: ANTICOAGULANT THERAPY
  11. METOPROLOL TARTRATE [Concomitant]
  12. XANAX [Concomitant]
     Indication: ANXIETY
     Dosage: 2MG 2 TO 3 PILLS DAILY
  13. PAXIL [Concomitant]
     Indication: ANXIETY

REACTIONS (3)
  - Blood triglycerides increased [Unknown]
  - Drug dose omission [Recovered/Resolved]
  - Intentional drug misuse [Not Recovered/Not Resolved]
